FAERS Safety Report 25494421 (Version 2)
Quarter: 2025Q3

REPORT INFORMATION
  Report Type: Report from Study
  Country: US (occurrence: US)
  Receive Date: 20250630
  Receipt Date: 20250720
  Transmission Date: 20251020
  Serious: Yes (Other)
  Sender: ABBVIE
  Company Number: US-ABBVIE-6344644

PATIENT
  Age: 42 Year
  Sex: Female
  Weight: 74.842 kg

DRUGS (5)
  1. HUMIRA [Suspect]
     Active Substance: ADALIMUMAB
     Indication: Crohn^s disease
     Dosage: FORM STRENGTH: 40 MILLIGRAM, DOSE FORM: SOLUTION FOR INJECTION IN PRE-FILLED PEN
     Route: 058
     Dates: start: 20250125
  2. DULOXETINE [Concomitant]
     Active Substance: DULOXETINE
     Indication: Anxiety
  3. LOESTRIN NOS [Concomitant]
     Active Substance: ETHINYL ESTRADIOL\NORETHINDRONE ACETATE
     Indication: Contraception
  4. PROPRANOLOL [Concomitant]
     Active Substance: PROPRANOLOL HYDROCHLORIDE
     Indication: Anxiety
  5. AZATHIOPRINE [Concomitant]
     Active Substance: AZATHIOPRINE
     Indication: Gastrointestinal inflammation

REACTIONS (1)
  - Abdominal pain [Recovering/Resolving]

NARRATIVE: CASE EVENT DATE: 20250201
